FAERS Safety Report 5879183-2 (Version None)
Quarter: 2008Q3

REPORT INFORMATION
  Report Type: 
  Country: None (occurrence: None)
  Receive Date: 20080912
  Receipt Date: 20080903
  Transmission Date: 20090109
  Serious: Yes (Hospitalization)
  Sender: FDA-Public Use
  Company Number: GB-AMGEN-UK302879

PATIENT
  Sex: Female
  Weight: 53.5 kg

DRUGS (2)
  1. PANITUMUMAB [Suspect]
     Indication: COLORECTAL CANCER
     Route: 042
     Dates: start: 20080605, end: 20080821
  2. IRINOTECAN HCL [Suspect]
     Route: 042
     Dates: start: 20080605, end: 20080821

REACTIONS (3)
  - DIARRHOEA [None]
  - PNEUMONITIS [None]
  - TACHYCARDIA [None]
